FAERS Safety Report 19507927 (Version 2)
Quarter: 2021Q3

REPORT INFORMATION
  Report Type: Spontaneous
  Country: US (occurrence: US)
  Receive Date: 20210708
  Receipt Date: 20210802
  Transmission Date: 20211014
  Serious: Yes (Other)
  Sender: FDA-Public Use
  Company Number: US-PFIZER INC-2021823933

PATIENT
  Age: 73 Year
  Sex: Female

DRUGS (3)
  1. GABAPENTIN. [Suspect]
     Active Substance: GABAPENTIN
     Dosage: 400 MG
     Route: 048
  2. TOVIAZ [Suspect]
     Active Substance: FESOTERODINE FUMARATE
     Dosage: UNK
  3. GABAPENTIN. [Suspect]
     Active Substance: GABAPENTIN
     Dosage: 900 MG, DAILY [TAKE 1 CAPSULE (300 MG) IN AM AND 2 CAPSULES (600 MG) BEFORE BED]
     Route: 048

REACTIONS (6)
  - Stress urinary incontinence [Not Recovered/Not Resolved]
  - Off label use [Unknown]
  - Pollakiuria [Not Recovered/Not Resolved]
  - Nocturia [Not Recovered/Not Resolved]
  - Urinary retention [Unknown]
  - Urge incontinence [Not Recovered/Not Resolved]
